FAERS Safety Report 9417548 (Version 2)
Quarter: 2013Q4

REPORT INFORMATION
  Report Type: Spontaneous
  Country: US (occurrence: US)
  Receive Date: 20130724
  Receipt Date: 20131022
  Transmission Date: 20140711
  Serious: No
  Sender: FDA-Public Use
  Company Number: US-BRISTOL-MYERS SQUIBB COMPANY-19026046

PATIENT
  Age: 86 Year
  Sex: Male
  Weight: 87.07 kg

DRUGS (6)
  1. ELIQUIS [Suspect]
     Indication: ATRIAL FIBRILLATION
     Dosage: ONE TAB 5MG?INTERRUPTED ON 21APR13
     Route: 048
     Dates: start: 20130412
  2. PLAVIX [Concomitant]
     Route: 048
  3. ATENOLOL [Concomitant]
     Route: 048
  4. CRESTOR [Concomitant]
     Route: 048
  5. VITAMINS [Concomitant]
  6. LISINOPRIL [Concomitant]
     Route: 048

REACTIONS (3)
  - Dizziness [Recovered/Resolved]
  - Tinnitus [Recovered/Resolved]
  - Asthenia [Recovered/Resolved]
